FAERS Safety Report 9345262 (Version 1)
Quarter: 2013Q2

REPORT INFORMATION
  Report Type: Report from Study
  Country: IL (occurrence: US)
  Receive Date: 20130613
  Receipt Date: 20130613
  Transmission Date: 20140414
  Serious: Yes (Other)
  Sender: FDA-Public Use
  Company Number: IL-AMGEN-ISRSP2013040829

PATIENT
  Age: 2 Year
  Sex: Male

DRUGS (3)
  1. ROMIPLOSTIM [Suspect]
     Indication: CONGENITAL THROMBOCYTE DISORDER
     Dosage: 170 MUG, QWK
     Dates: start: 2012
  2. PREDNISONE [Concomitant]
  3. CYCLOSPORINE [Concomitant]

REACTIONS (2)
  - Skin haemorrhage [Unknown]
  - Platelet count decreased [Unknown]
